FAERS Safety Report 19754693 (Version 1)
Quarter: 2021Q3

REPORT INFORMATION
  Report Type: Spontaneous
  Country: GB (occurrence: GB)
  Receive Date: 20210827
  Receipt Date: 20210827
  Transmission Date: 20211014
  Serious: Yes (Disabling)
  Sender: FDA-Public Use
  Company Number: GB-ELI_LILLY_AND_COMPANY-GB202108006736

PATIENT
  Age: 30 Year
  Sex: Female
  Weight: 76.2 kg

DRUGS (2)
  1. DULOXETINE HYDROCHLORIDE. [Suspect]
     Active Substance: DULOXETINE HYDROCHLORIDE
     Indication: FIBROMYALGIA
     Dosage: 30 MG, UNKNOWN
     Route: 048
     Dates: start: 20210811, end: 20210813
  2. CODEIN [Concomitant]
     Active Substance: CODEINE
     Indication: ILL-DEFINED DISORDER
     Dosage: UNK, UNKNOWN
     Route: 065

REACTIONS (6)
  - Tinnitus [Not Recovered/Not Resolved]
  - Hot flush [Not Recovered/Not Resolved]
  - Vision blurred [Not Recovered/Not Resolved]
  - Migraine [Not Recovered/Not Resolved]
  - Photopsia [Recovered/Resolved with Sequelae]
  - Nausea [Not Recovered/Not Resolved]

NARRATIVE: CASE EVENT DATE: 20210811
